FAERS Safety Report 8102812-X (Version None)
Quarter: 2011Q4

REPORT INFORMATION
  Report Type: 
  Country: None (occurrence: None)
  Receive Date: 20111222
  Receipt Date: 20111103
  Transmission Date: 20120403
  Serious: Yes (Hospitalization)
  Sender: FDA-Public Use
  Company Number: UTC-011052

PATIENT
  Age: 52 Year
  Sex: Female
  Weight: 72.73 kg

DRUGS (3)
  1. TRACLEER [Concomitant]
  2. COUMADIN [Concomitant]
  3. TYVASO [Suspect]
     Indication: COR PULMONALE CHRONIC
     Dosage: 216 MCG (54 MCG, 4 IN 1 D), INHALATION
     Route: 055
     Dates: start: 20110708

REACTIONS (5)
  - SICKLE CELL ANAEMIA WITH CRISIS [None]
  - ACUTE CHEST SYNDROME [None]
  - CARDIAC FAILURE CONGESTIVE [None]
  - LUNG DISORDER [None]
  - ACUTE RESPIRATORY FAILURE [None]
